FAERS Safety Report 7269587-8 (Version None)
Quarter: 2011Q1

REPORT INFORMATION
  Report Type: 
  Country: None (occurrence: None)
  Receive Date: 20110125
  Receipt Date: 20110119
  Transmission Date: 20110831
  Serious: No
  Sender: FDA-Public Use
  Company Number: CAP10000384

PATIENT
  Age: 63 Year
  Sex: Female

DRUGS (5)
  1. AVALIDE [Concomitant]
  2. HYDROCHLOROTHIAZIDE [Concomitant]
  3. ACTONEL [Suspect]
     Indication: OSTEOPOROSIS POSTMENOPAUSAL
     Dosage: 150 MG MONTHLY, ORAL
     Route: 048
     Dates: start: 20100501, end: 20100903
  4. RALOXIFENE HCL [Concomitant]
  5. LEVOTHYROXINE SODIUM [Concomitant]

REACTIONS (9)
  - BACK PAIN [None]
  - BLOOD CALCIUM DECREASED [None]
  - HEART RATE INCREASED [None]
  - SHIFT TO THE LEFT [None]
  - DYSPNOEA [None]
  - BODY TEMPERATURE INCREASED [None]
  - MUSCULOSKELETAL PAIN [None]
  - MUSCLE SPASMS [None]
  - HYPOKINESIA [None]
